FAERS Safety Report 7956485-7 (Version None)
Quarter: 2011Q4

REPORT INFORMATION
  Report Type: 
  Country: None (occurrence: None)
  Receive Date: 20111205
  Receipt Date: 20111130
  Transmission Date: 20120403
  Serious: Yes (Death, Hospitalization)
  Sender: FDA-Public Use
  Company Number: TW-BAYER-201044053GPV

PATIENT
  Age: 58 Year
  Sex: Male
  Weight: 63.5 kg

DRUGS (4)
  1. SORAFENIB [Suspect]
     Dosage: 400 MG, BID
     Route: 048
     Dates: start: 20100830, end: 20100920
  2. SORAFENIB [Suspect]
     Dosage: 400 MG, BID
     Route: 048
     Dates: start: 20100719, end: 20100830
  3. BLINDED SORAFENIB (RAF KINASE INHIBITOR) [Suspect]
     Indication: HEPATIC NEOPLASM MALIGNANT
     Dosage: 150 MG, QD
     Route: 048
     Dates: start: 20100607, end: 20100919
  4. SORAFENIB [Suspect]
     Indication: HEPATIC NEOPLASM MALIGNANT
     Dosage: 400 MG, BID
     Route: 048
     Dates: start: 20100607, end: 20100719

REACTIONS (4)
  - CARDIAC ARREST [None]
  - DYSPNOEA [None]
  - HEPATIC FAILURE [None]
  - BRADYCARDIA [None]
